FAERS Safety Report 9123315 (Version 2)
Quarter: 2013Q1

REPORT INFORMATION
  Report Type: Spontaneous
  Country: JP (occurrence: JP)
  Receive Date: 20130115
  Receipt Date: 20130121
  Transmission Date: 20140127
  Serious: Yes (Hospitalization)
  Sender: FDA-Public Use
  Company Number: JP-009507513-1301JPN005380

PATIENT
  Age: 63 Year
  Sex: Female

DRUGS (5)
  1. THERAPY UNSPECIFIED [Suspect]
     Indication: TYPE 2 DIABETES MELLITUS
     Dosage: 50 MG DAILY, THE DIVIDED DOSE FREQUENCY WAS UNCERTAIN
     Route: 048
     Dates: start: 201101
  2. GLIMEPIRIDE [Concomitant]
     Indication: TYPE 2 DIABETES MELLITUS
     Dosage: 6 MG DAILY, THE DIVIDED DOSE FREQUENCY WAS UNCERTAIN
     Route: 048
  3. GLIMEPIRIDE [Concomitant]
     Dosage: 2 MG DAILY, UNK
     Route: 048
     Dates: start: 201101
  4. METFORMIN HYDROCHLORIDE [Concomitant]
     Indication: TYPE 2 DIABETES MELLITUS
     Dosage: 750 MG DAILY, THE DIVIDED DOSE FREQUENCY WAS UNCERTAIN
     Route: 048
  5. PIOGLITAZONE HYDROCHLORIDE [Concomitant]
     Indication: TYPE 2 DIABETES MELLITUS
     Dosage: 15 MG DAILY , THE DIVIDED DOSE FREQUENCY WAS UNCERTAIN
     Route: 048

REACTIONS (1)
  - Granulomatous liver disease [Not Recovered/Not Resolved]
